FAERS Safety Report 8106510-8 (Version None)
Quarter: 2012Q1

REPORT INFORMATION
  Report Type: 
  Country: None (occurrence: None)
  Receive Date: 20120202
  Receipt Date: 20120130
  Transmission Date: 20120608
  Serious: Yes (Death)
  Sender: FDA-Public Use
  Company Number: US-CELGENEUS-163-21880-11100862

PATIENT
  Sex: Female

DRUGS (16)
  1. REVLIMID [Suspect]
     Dosage: 10MG-5MG
     Route: 048
     Dates: start: 20100601
  2. BACTRIM DS [Concomitant]
     Dosage: 800-160
     Route: 048
  3. GABAPENTIN [Concomitant]
     Dosage: 300 MILLIGRAM
     Route: 048
  4. REVLIMID [Suspect]
     Indication: MULTIPLE MYELOMA
     Dosage: 5 MILLIGRAM
     Route: 048
     Dates: start: 20080801
  5. ACYCLOVIR [Concomitant]
     Dosage: 400 MILLIGRAM
     Route: 048
  6. AREDIA [Concomitant]
     Dosage: 30 MILLIGRAM
     Route: 065
  7. VELCADE [Concomitant]
     Route: 065
  8. QUININE SULFATE [Concomitant]
     Dosage: 325 MILLIGRAM
     Route: 048
  9. FENTANYL CITRATE [Concomitant]
     Dosage: 100 MICROGRAM
     Route: 065
  10. VITAMIN D [Concomitant]
     Dosage: 1000 UNIT
     Route: 048
  11. ASPIRIN [Concomitant]
     Dosage: 325 MILLIGRAM
     Route: 048
  12. PREVACID [Concomitant]
     Dosage: 15 MILLIGRAM
     Route: 048
  13. ZOVIRAX [Concomitant]
     Dosage: 200 MILLIGRAM
     Route: 048
  14. REVLIMID [Suspect]
     Dosage: 10 MILLIGRAM
     Route: 048
     Dates: start: 20110701, end: 20110101
  15. MAGNESIUM [Concomitant]
     Dosage: 500 MILLIGRAM
     Route: 048
  16. PREDNISONE [Concomitant]
     Dosage: 10 MILLIGRAM
     Route: 048

REACTIONS (1)
  - SUDDEN DEATH [None]
